FAERS Safety Report 22710875 (Version 2)
Quarter: 2024Q3

REPORT INFORMATION
  Report Type: Spontaneous
  Country: US (occurrence: US)
  Receive Date: 20230717
  Receipt Date: 20240813
  Transmission Date: 20241016
  Serious: No
  Sender: GALDERMA
  Company Number: US-GALDERMA-US2023008969

PATIENT

DRUGS (1)
  1. METRONIDAZOLE [Suspect]
     Active Substance: METRONIDAZOLE
     Indication: Product used for unknown indication
     Dosage: 1 DOSAGE FORM
     Route: 061

REACTIONS (4)
  - Product dose omission issue [Recovered/Resolved]
  - Product use in unapproved indication [Recovered/Resolved]
  - Product container issue [Recovered/Resolved]
  - Product leakage [Recovered/Resolved]
